FAERS Safety Report 5358410-4 (Version None)
Quarter: 2007Q2

REPORT INFORMATION
  Report Type: 
  Country: None (occurrence: None)
  Receive Date: 20070530
  Receipt Date: 20061004
  Transmission Date: 20071010
  Serious: Yes (Other)
  Sender: FDA-Public Use
  Company Number: US200601000971

PATIENT
  Age: 34 Year
  Sex: Female
  Weight: 95 kg

DRUGS (8)
  1. ZYPREXA [Suspect]
     Indication: BIPOLAR DISORDER
     Dosage: SEE IMAGE
     Dates: start: 20000501, end: 20050901
  2. DEPAKOTE [Concomitant]
  3. KLONOPIN [Concomitant]
  4. ATIVAN (LORAZAPEM) [Concomitant]
  5. METHADONE HCL [Concomitant]
  6. ATROVENT [Concomitant]
  7. ALDACTONE [Concomitant]
  8. HYDROCHLOROTHIAZIDE [Concomitant]

REACTIONS (2)
  - DIABETES MELLITUS NON-INSULIN-DEPENDENT [None]
  - WEIGHT INCREASED [None]
